FAERS Safety Report 5755843-9 (Version None)
Quarter: 2008Q2

REPORT INFORMATION
  Report Type: 
  Country: None (occurrence: None)
  Receive Date: 20080528
  Receipt Date: 20080521
  Transmission Date: 20081010
  Serious: Yes (Death)
  Sender: FDA-Public Use
  Company Number: TCI2007A02009

PATIENT
  Age: 81 Year
  Sex: Male
  Weight: 60 kg

DRUGS (2)
  1. LEUPROLIDE ACETATE [Suspect]
     Indication: PROSTATE CANCER STAGE IV
     Dosage: 11.25 MG (1.25 MG, 1 IN 12 WK) ; SUBCUTANEOUS
     Route: 058
     Dates: start: 20060414, end: 20061225
  2. CASODEX [Concomitant]

REACTIONS (1)
  - CEREBRAL INFARCTION [None]
